FAERS Safety Report 4385574-1 (Version None)
Quarter: 2004Q2

REPORT INFORMATION
  Report Type: 
  Country: None (occurrence: None)
  Receive Date: 20040623
  Receipt Date: 20040614
  Transmission Date: 20050107
  Serious: Yes (Death)
  Sender: FDA-Public Use
  Company Number: GB-JNJFOC-20040603105

PATIENT
  Age: 53 Year
  Sex: Female

DRUGS (4)
  1. REMICADE [Suspect]
     Indication: RHEUMATOID ARTHRITIS
     Dosage: INTRAVENOUS
     Route: 042
     Dates: start: 20021128, end: 20031001
  2. PREDNISOLONE [Concomitant]
  3. MYOCRISIN (SODIUM AUROTHIOMALATE) [Concomitant]
  4. MOVELAT (MOVELAT) [Concomitant]

REACTIONS (1)
  - DEATH [None]
